FAERS Safety Report 8998321 (Version 1)
Quarter: 2013Q1

REPORT INFORMATION
  Report Type: Spontaneous
  Country: JP (occurrence: JP)
  Receive Date: 20130104
  Receipt Date: 20130104
  Transmission Date: 20140127
  Serious: Yes (Hospitalization)
  Sender: FDA-Public Use
  Company Number: JP-PFIZER INC-2012333107

PATIENT
  Age: 70 Year
  Sex: Male

DRUGS (1)
  1. MINIPRESS [Suspect]
     Dosage: 0.5 MG, 3X/DAY
     Route: 048

REACTIONS (1)
  - Fracture [Unknown]
